FAERS Safety Report 16653422 (Version 5)
Quarter: 2020Q4

REPORT INFORMATION
  Report Type: Spontaneous
  Country: US (occurrence: US)
  Receive Date: 20190731
  Receipt Date: 20201111
  Transmission Date: 20210113
  Serious: Yes (Death, Other)
  Sender: FDA-Public Use
  Company Number: US-GILEAD-2019-0420316

PATIENT
  Age: 70 Year
  Sex: Male
  Weight: 63.49 kg

DRUGS (16)
  1. ATRIPLA [Suspect]
     Active Substance: EFAVIRENZ\EMTRICITABINE\TENOFOVIR DISOPROXIL FUMARATE
     Indication: PRODUCT USED FOR UNKNOWN INDICATION
     Dosage: UNK
     Route: 048
  2. ASPIRIN 81 [Concomitant]
     Active Substance: ASPIRIN
  3. LASIX [Concomitant]
     Active Substance: FUROSEMIDE
  4. EZETIMIBE;SIMVASTATIN [Concomitant]
     Active Substance: EZETIMIBE\SIMVASTATIN
  5. TIVICAY [Concomitant]
     Active Substance: DOLUTEGRAVIR SODIUM
  6. ATOVAQUONE. [Concomitant]
     Active Substance: ATOVAQUONE
  7. PREZCOBIX [Concomitant]
     Active Substance: COBICISTAT\DARUNAVIR ETHANOLATE
  8. ZIAGEN [Concomitant]
     Active Substance: ABACAVIR SULFATE
  9. LANTUS [Concomitant]
     Active Substance: INSULIN GLARGINE
  10. TRUVADA [Suspect]
     Active Substance: EMTRICITABINE\TENOFOVIR DISOPROXIL FUMARATE
     Indication: HIV INFECTION
     Dosage: UNK
     Route: 048
     Dates: start: 200705, end: 201904
  11. ACETAMINOPHEN. [Concomitant]
     Active Substance: ACETAMINOPHEN
  12. METOPROLOL SUCCINATE. [Concomitant]
     Active Substance: METOPROLOL SUCCINATE
  13. POTASSIUM CHLORIDE. [Concomitant]
     Active Substance: POTASSIUM CHLORIDE
  14. ALLOPURINOL. [Concomitant]
     Active Substance: ALLOPURINOL
  15. FLOMAX [Concomitant]
     Active Substance: TAMSULOSIN HYDROCHLORIDE
  16. KETOCONAZOLE. [Concomitant]
     Active Substance: KETOCONAZOLE

REACTIONS (12)
  - Tooth disorder [Not Recovered/Not Resolved]
  - Death [Fatal]
  - Emotional distress [Unknown]
  - Economic problem [Unknown]
  - Compression fracture [Recovered/Resolved]
  - Anhedonia [Unknown]
  - Pain [Unknown]
  - Osteoporosis [Not Recovered/Not Resolved]
  - Anxiety [Unknown]
  - Chronic kidney disease [Not Recovered/Not Resolved]
  - Renal failure [Not Recovered/Not Resolved]
  - Gait disturbance [Unknown]

NARRATIVE: CASE EVENT DATE: 201205
